FAERS Safety Report 21060662 (Version 1)
Quarter: 2022Q3

REPORT INFORMATION
  Report Type: Spontaneous
  Country: CN (occurrence: None)
  Receive Date: 20220708
  Receipt Date: 20220708
  Transmission Date: 20221027
  Serious: Yes (Other)
  Sender: FDA-Public Use
  Company Number: CN-ROCHE-3129311

PATIENT
  Age: 35 Year
  Sex: Female
  Weight: 60 kg

DRUGS (4)
  1. HERCEPTIN [Suspect]
     Active Substance: TRASTUZUMAB
     Indication: Invasive ductal breast carcinoma
     Dosage: 8 MG/KG (480 MG, LOADING DOSE), 6 MG/KG (360 MG, MAINTENANCE DOSE)
     Route: 065
     Dates: start: 20210818
  2. PERJETA [Suspect]
     Active Substance: PERTUZUMAB
     Indication: Invasive ductal breast carcinoma
     Dosage: 840 MG (LOADING DOSE), 420 MG (MAINTENANCE DOSE)
     Route: 065
     Dates: start: 20210818
  3. TAXOL [Suspect]
     Active Substance: PACLITAXEL
     Indication: Invasive ductal breast carcinoma
     Dosage: SPECIFICALLY 400 MG
     Route: 065
     Dates: start: 20210818
  4. CARBOPLATIN [Suspect]
     Active Substance: CARBOPLATIN
     Indication: Invasive ductal breast carcinoma
     Route: 065
     Dates: start: 20210818

REACTIONS (3)
  - Myelosuppression [Recovered/Resolved]
  - Nausea [Unknown]
  - Vomiting [Unknown]

NARRATIVE: CASE EVENT DATE: 20210825
